FAERS Safety Report 9783628 (Version 1)
Quarter: 2013Q4

REPORT INFORMATION
  Report Type: Spontaneous
  Country: GB (occurrence: GB)
  Receive Date: 20131226
  Receipt Date: 20131226
  Transmission Date: 20140711
  Serious: Yes (Life-Threatening, Hospitalization)
  Sender: FDA-Public Use
  Company Number: GB-TEVA-451484ISR

PATIENT
  Age: 22 Year
  Sex: Male

DRUGS (5)
  1. PREDNISONE [Suspect]
     Indication: B-CELL LYMPHOMA
     Dates: start: 200703
  2. VINCRISTINE [Suspect]
     Indication: B-CELL LYMPHOMA
     Dates: start: 200703
  3. MABTHERA [Suspect]
     Indication: B-CELL LYMPHOMA
     Dates: start: 200703
  4. CYCLOPHOSPHAMIDE [Suspect]
     Indication: B-CELL LYMPHOMA
     Dates: start: 200703
  5. ADRIAMYCIN [Suspect]
     Indication: B-CELL LYMPHOMA
     Dates: start: 200703

REACTIONS (4)
  - Cytomegalovirus infection [Not Recovered/Not Resolved]
  - Pneumonitis [Not Recovered/Not Resolved]
  - Colitis [Not Recovered/Not Resolved]
  - Hepatitis [Unknown]
